FAERS Safety Report 8060106 (Version 2)
Quarter: 2024Q3

REPORT INFORMATION
  Report Type: Spontaneous
  Country: US (occurrence: US)
  Receive Date: 20110729
  Receipt Date: 20240906
  Transmission Date: 20241017
  Serious: Yes (Life-Threatening, Hospitalization)
  Sender: JOHNSON AND JOHNSON
  Company Number: US-JNJFOC-20110709244

PATIENT
  Age: 2 Year

DRUGS (2)
  1. RISPERIDONE [Suspect]
     Active Substance: RISPERIDONE
     Indication: Seizure
     Route: 065
  2. VALPROATE SODIUM [Suspect]
     Active Substance: VALPROATE SODIUM
     Indication: Product used for unknown indication
     Route: 065

REACTIONS (3)
  - Status epilepticus [Unknown]
  - Accidental overdose [Unknown]
  - Product administered to patient of inappropriate age [Unknown]
